FAERS Safety Report 6651502-9 (Version None)
Quarter: 2010Q1

REPORT INFORMATION
  Report Type: 
  Country: None (occurrence: None)
  Receive Date: 20100325
  Receipt Date: 20100316
  Transmission Date: 20100710
  Serious: Yes (Other)
  Sender: FDA-Public Use
  Company Number: BR-ROCHE-691490

PATIENT
  Sex: Female
  Weight: 80 kg

DRUGS (7)
  1. XENICAL [Suspect]
     Indication: WEIGHT CONTROL
     Route: 065
     Dates: end: 20050101
  2. XENICAL [Suspect]
     Dosage: TWICE A DAY AFTER LUNCH AND AFTER DINNER. STRENGTH: 120 MG. FORM: CAPSULE.
     Route: 065
     Dates: start: 20100224
  3. RIVOTRIL [Suspect]
     Indication: INSOMNIA
     Dosage: ONE DOSE AT NIGHT.
     Route: 065
     Dates: start: 20050101
  4. ADALAT [Concomitant]
     Dosage: THERAPY START DATE: MORE THAN 20 YEARS AGO.
     Dates: start: 19900101
  5. RANITIDINE [Concomitant]
  6. OMEPRAZOLE [Concomitant]
  7. PLENTY [Concomitant]
     Dates: start: 20100204

REACTIONS (9)
  - BONE DISORDER [None]
  - ERYTHEMA [None]
  - HELICOBACTER TEST POSITIVE [None]
  - HEPATIC STEATOSIS [None]
  - HIATUS HERNIA [None]
  - ILL-DEFINED DISORDER [None]
  - PARAPLEGIA [None]
  - PRURITUS [None]
  - SWELLING [None]
